FAERS Safety Report 13649830 (Version 1)
Quarter: 2017Q2

REPORT INFORMATION
  Report Type: Spontaneous
  Country: IN (occurrence: IN)
  Receive Date: 20170614
  Receipt Date: 20170614
  Transmission Date: 20170830
  Serious: Yes (Other)
  Sender: FDA-Public Use
  Company Number: IN-ENDO PHARMACEUTICALS INC-2017-003341

PATIENT
  Age: 36 Year
  Sex: Male

DRUGS (7)
  1. LORAZEPAM. [Concomitant]
     Active Substance: LORAZEPAM
     Indication: MAJOR DEPRESSION
     Dosage: 2 MG, UNKNOWN
     Route: 065
  2. BACLOFEN TABLETS [Suspect]
     Active Substance: BACLOFEN
     Dosage: 80 MG, DAILY
     Route: 065
  3. QUETIAPINE. [Concomitant]
     Active Substance: QUETIAPINE
     Indication: MAJOR DEPRESSION
     Dosage: 100 MG, DAILY
     Route: 065
  4. BACLOFEN TABLETS [Suspect]
     Active Substance: BACLOFEN
     Indication: ALCOHOLISM
     Dosage: 30 MG, DAILY
     Route: 065
  5. MIRTAZEPINE [Concomitant]
     Active Substance: MIRTAZAPINE
     Indication: MAJOR DEPRESSION
     Dosage: 15 MG, DAILY, AT BEDTIME
     Route: 065
  6. BACLOFEN TABLETS [Suspect]
     Active Substance: BACLOFEN
     Dosage: 20 MG, DAILY
     Route: 065
  7. ESCITALOPRAM [Concomitant]
     Active Substance: ESCITALOPRAM OXALATE
     Indication: MAJOR DEPRESSION
     Dosage: 20 MG, DAILY
     Route: 065

REACTIONS (3)
  - Hypomania [Unknown]
  - Drug use disorder [Unknown]
  - Off label use [Unknown]
